FAERS Safety Report 15945376 (Version 3)
Quarter: 2019Q3

REPORT INFORMATION
  Report Type: Spontaneous
  Country: US (occurrence: US)
  Receive Date: 20190211
  Receipt Date: 20190814
  Transmission Date: 20191004
  Serious: No
  Sender: FDA-Public Use
  Company Number: US-SA-2019SA034341

PATIENT
  Age: 15 Year
  Sex: Female

DRUGS (1)
  1. DUPIXENT [Suspect]
     Active Substance: DUPILUMAB
     Indication: DERMATITIS ATOPIC
     Dosage: UNK, OTHER
     Route: 058
     Dates: start: 20190118

REACTIONS (3)
  - Product dose omission [Unknown]
  - Eyelid skin dryness [Unknown]
  - Pruritus [Unknown]

NARRATIVE: CASE EVENT DATE: 20190806
